FAERS Safety Report 20713652 (Version 1)
Quarter: 2022Q2

REPORT INFORMATION
  Report Type: Spontaneous
  Country: US (occurrence: US)
  Receive Date: 20220415
  Receipt Date: 20220415
  Transmission Date: 20220721
  Serious: Yes (Hospitalization)
  Sender: FDA-Public Use
  Company Number: US-MYLANLABS-2022M1027467

PATIENT
  Age: 21 Year
  Sex: Female

DRUGS (4)
  1. FLUOXETINE [Suspect]
     Active Substance: FLUOXETINE HYDROCHLORIDE
     Indication: Depression
     Dosage: UNK
     Route: 065
  2. HALOPERIDOL [Suspect]
     Active Substance: HALOPERIDOL
     Indication: Sedation
     Dosage: UNK
     Route: 065
  3. OLANZAPINE [Suspect]
     Active Substance: OLANZAPINE
     Indication: Sedation
     Dosage: UNK
     Route: 065
  4. KETAMINE [Concomitant]
     Active Substance: KETAMINE
     Indication: Depressive symptom
     Dosage: UNK, 6 INFUSIONS OVER 2 WEEKS
     Route: 065

REACTIONS (3)
  - Drug ineffective [Unknown]
  - Akathisia [Unknown]
  - Off label use [Unknown]
